FAERS Safety Report 16769897 (Version 1)
Quarter: 2019Q3

REPORT INFORMATION
  Report Type: Spontaneous
  Country: AU (occurrence: AU)
  Receive Date: 20190904
  Receipt Date: 20190904
  Transmission Date: 20191005
  Serious: Yes (Other)
  Sender: FDA-Public Use
  Company Number: AU-BEH-2019106532

PATIENT
  Age: 40 Year
  Sex: Female

DRUGS (1)
  1. PRIVIGEN [Suspect]
     Active Substance: HUMAN IMMUNOGLOBULIN G
     Indication: PYODERMA GANGRENOSUM
     Dosage: 40 UNITS ONCE OFF (1 DAY)
     Route: 042
     Dates: start: 20190731, end: 20190731

REACTIONS (4)
  - No adverse event [Unknown]
  - Tachycardia [Recovered/Resolved]
  - Pharyngeal swelling [Recovered/Resolved]
  - Product use in unapproved indication [Unknown]

NARRATIVE: CASE EVENT DATE: 20190731
